FAERS Safety Report 12448442 (Version 5)
Quarter: 2016Q4

REPORT INFORMATION
  Report Type: Report from Study
  Country: BR (occurrence: BR)
  Receive Date: 20160608
  Receipt Date: 20161012
  Transmission Date: 20170207
  Serious: Yes (Other)
  Sender: FDA-Public Use
  Company Number: PHHY2016BR075525

PATIENT
  Sex: Female
  Weight: 47 kg

DRUGS (2)
  1. LECTRUM [Concomitant]
     Active Substance: LEUPROLIDE ACETATE
     Indication: PRECOCIOUS PUBERTY
     Dosage: UNK
     Route: 065
     Dates: end: 201608
  2. OMNITROPE [Suspect]
     Active Substance: SOMATROPIN
     Indication: GROWTH HORMONE DEFICIENCY
     Dosage: 0.6 MG, UNK
     Route: 058
     Dates: end: 201608

REACTIONS (6)
  - Blood glucose increased [Not Recovered/Not Resolved]
  - Device issue [Unknown]
  - Headache [Recovered/Resolved]
  - Ear infection [Recovered/Resolved]
  - Palpitations [Recovered/Resolved]
  - 17-hydroxyprogesterone increased [Unknown]
